FAERS Safety Report 22119425 (Version 1)
Quarter: 2023Q1

REPORT INFORMATION
  Report Type: Spontaneous
  Country: US (occurrence: US)
  Receive Date: 20230321
  Receipt Date: 20230321
  Transmission Date: 20230417
  Serious: No
  Sender: FDA-Public Use
  Company Number: US-NOVITIUMPHARMA-2023USNVP00366

PATIENT

DRUGS (1)
  1. BETAINE ANHYDROUS [Suspect]
     Active Substance: BETAINE
     Indication: Product used for unknown indication
     Route: 048

REACTIONS (1)
  - Overdose [Unknown]
